FAERS Safety Report 11808297 (Version 1)
Quarter: 2015Q4

REPORT INFORMATION
  Report Type: Spontaneous
  Country: US (occurrence: US)
  Receive Date: 20151207
  Receipt Date: 20151207
  Transmission Date: 20160305
  Serious: No
  Sender: FDA-Public Use
  Company Number: US-ROCHE-1514208

PATIENT
  Sex: Female

DRUGS (2)
  1. DEPO-MEDROL [Concomitant]
     Active Substance: METHYLPREDNISOLONE ACETATE
     Route: 065
  2. VALIUM [Suspect]
     Active Substance: DIAZEPAM
     Indication: MUSCLE TWITCHING
     Route: 065

REACTIONS (1)
  - Impaired work ability [Unknown]
